FAERS Safety Report 9029442 (Version 2)
Quarter: 2013Q1

REPORT INFORMATION
  Report Type: Spontaneous
  Country: US (occurrence: US)
  Receive Date: 20130125
  Receipt Date: 20130131
  Transmission Date: 20140127
  Serious: Yes (Hospitalization)
  Sender: FDA-Public Use
  Company Number: US-BAYER-2013-006851

PATIENT
  Age: 47 Year
  Sex: Female

DRUGS (12)
  1. YAZ [Suspect]
  2. BUDEPRION [Concomitant]
     Dosage: 300 MG, UNK
  3. CLONAZEPAM [Concomitant]
     Route: 048
  4. COPAXONE [Concomitant]
     Dosage: 0.5 MG, QD
     Route: 058
  5. EXCEDRIN MIGRAINE [Concomitant]
     Indication: MIGRAINE
     Dosage: ORAL TABLET, 250-250-65MG
     Route: 048
  6. MULTIVITAMIN [Concomitant]
     Dosage: 1 A DAY
     Route: 048
  7. PROVIGIL [Concomitant]
     Dosage: 200 MG, QD, 1TABLET IN AM,DAILY
     Route: 048
  8. VITAMIN B12 [Concomitant]
     Route: 048
  9. ZONISAMIDE [Concomitant]
     Dosage: 100 MG, UNK
     Route: 048
  10. LORTAB [Concomitant]
     Indication: HEADACHE
  11. TORADOL [Concomitant]
     Indication: HEADACHE
  12. WELLBUTRIN XL [Concomitant]

REACTIONS (1)
  - Intracranial venous sinus thrombosis [Recovered/Resolved]
